FAERS Safety Report 24317701 (Version 3)
Quarter: 2024Q4

REPORT INFORMATION
  Report Type: Spontaneous
  Country: US (occurrence: US)
  Receive Date: 20240913
  Receipt Date: 20241008
  Transmission Date: 20250115
  Serious: No
  Sender: PFIZER
  Company Number: US-PFIZER INC-202400254551

PATIENT
  Age: 52 Year
  Sex: Male
  Weight: 81.65 kg

DRUGS (3)
  1. BRAFTOVI [Suspect]
     Active Substance: ENCORAFENIB
     Indication: Malignant melanoma
     Dosage: 300 MG, 1X/DAY (75 MILLIGRAMS, PREVIOUSLY, TAKING 4 TABLETS ONE TIME A DAY)
     Route: 048
     Dates: start: 202406, end: 2024
  2. MEKTOVI [Suspect]
     Active Substance: BINIMETINIB
     Indication: Malignant melanoma
     Dosage: 30 MG, 2X/DAY (15 MILLIGRAMS, 2 TABLETS TWICE A DAY)
     Route: 048
     Dates: start: 202406, end: 2024
  3. ENALAPRIL [Concomitant]
     Active Substance: ENALAPRIL
     Indication: Hypertension
     Dosage: 20 MG, 1X/DAY (ONE TIME DAILY)

REACTIONS (3)
  - Eczema [Recovering/Resolving]
  - Nasopharyngitis [Recovering/Resolving]
  - Intentional dose omission [Unknown]

NARRATIVE: CASE EVENT DATE: 20240101
